FAERS Safety Report 24062151 (Version 1)
Quarter: 2024Q3

REPORT INFORMATION
  Report Type: Spontaneous
  Country: HU (occurrence: HU)
  Receive Date: 20240708
  Receipt Date: 20240708
  Transmission Date: 20241016
  Serious: Yes (Hospitalization, Other)
  Sender: MEITHEAL PHARMACEUTICALS
  Company Number: HU-MEITHEAL-2024MPLIT00193

PATIENT
  Age: 73 Year
  Sex: Male

DRUGS (15)
  1. TIGECYCLINE [Suspect]
     Active Substance: TIGECYCLINE
     Indication: Pseudomonas infection
     Route: 065
  2. TIGECYCLINE [Suspect]
     Active Substance: TIGECYCLINE
     Indication: Enterococcal infection
  3. TIGECYCLINE [Suspect]
     Active Substance: TIGECYCLINE
     Indication: Pneumonia
  4. UNSPECIFIED INGREDIENT [Suspect]
     Active Substance: UNSPECIFIED INGREDIENT
     Indication: Pseudomonas infection
     Route: 065
  5. UNSPECIFIED INGREDIENT [Suspect]
     Active Substance: UNSPECIFIED INGREDIENT
     Indication: Enterococcal infection
  6. UNSPECIFIED INGREDIENT [Suspect]
     Active Substance: UNSPECIFIED INGREDIENT
     Indication: Pneumonia
  7. UNSPECIFIED INGREDIENT [Concomitant]
     Active Substance: UNSPECIFIED INGREDIENT
     Indication: Pneumonia
     Route: 065
  8. VANCOMYCIN [Concomitant]
     Active Substance: VANCOMYCIN
     Indication: Clostridium difficile infection
     Route: 048
  9. METHYLPREDNISOLONE [Concomitant]
     Active Substance: METHYLPREDNISOLONE
     Indication: Immunosuppressant drug therapy
     Route: 065
  10. EVEROLIMUS [Concomitant]
     Active Substance: EVEROLIMUS
     Indication: Immunosuppressant drug therapy
     Route: 065
  11. MICAFUNGIN [Concomitant]
     Active Substance: MICAFUNGIN SODIUM
     Route: 065
  12. MICAFUNGIN [Concomitant]
     Active Substance: MICAFUNGIN SODIUM
  13. MICAFUNGIN [Concomitant]
     Active Substance: MICAFUNGIN SODIUM
     Indication: Pneumonia
  14. immunoglobulin [Concomitant]
     Indication: Guillain-Barre syndrome
     Route: 042
  15. TICAGRELOR [Concomitant]
     Active Substance: TICAGRELOR
     Indication: Atrial fibrillation
     Route: 065

REACTIONS (1)
  - Stenotrophomonas infection [Unknown]
